FAERS Safety Report 8449355-1 (Version None)
Quarter: 2012Q2

REPORT INFORMATION
  Report Type: 
  Country: None (occurrence: None)
  Receive Date: 20120619
  Receipt Date: 20120613
  Transmission Date: 20120825
  Serious: Yes (Death)
  Sender: FDA-Public Use
  Company Number: US-FRI-1000028820

PATIENT
  Age: 22 Year
  Sex: Female

DRUGS (3)
  1. MORPHINE [Suspect]
  2. CITALOPRAM HYDROBROMIDE [Suspect]
  3. SALICYLATE [Suspect]

REACTIONS (2)
  - COMPLETED SUICIDE [None]
  - TOXICITY TO VARIOUS AGENTS [None]
